FAERS Safety Report 10023987 (Version 2)
Quarter: 2014Q2

REPORT INFORMATION
  Report Type: Report from Study
  Country: FR (occurrence: FR)
  Receive Date: 20140320
  Receipt Date: 20140407
  Transmission Date: 20141212
  Serious: Yes (Death, Life-Threatening, Hospitalization, Other)
  Sender: FDA-Public Use
  Company Number: FR-ASTELLAS-2014EU002424

PATIENT
  Age: 61 Year
  Sex: Female

DRUGS (1)
  1. MICAFUNGIN [Suspect]
     Route: 042
     Dates: start: 20131115, end: 20131210

REACTIONS (4)
  - Acute respiratory distress syndrome [Fatal]
  - Leukaemia recurrent [Fatal]
  - Hepatic candidiasis [Recovering/Resolving]
  - Cytomegalovirus infection [Recovering/Resolving]
